FAERS Safety Report 7671940-5 (Version None)
Quarter: 2011Q3

REPORT INFORMATION
  Report Type: 
  Country: None (occurrence: None)
  Receive Date: 20110809
  Receipt Date: 20110802
  Transmission Date: 20111222
  Serious: Yes (Other)
  Sender: FDA-Public Use
  Company Number: CA-GLAXOSMITHKLINE-A0939437A

PATIENT
  Sex: Female
  Weight: 79.1 kg

DRUGS (5)
  1. CRESTOR [Concomitant]
  2. DIOVAN [Concomitant]
  3. ADVAIR DISKUS 100/50 [Suspect]
     Indication: ASTHMA
     Dosage: 1PUFF SEE DOSAGE TEXT
     Route: 055
     Dates: start: 20070101
  4. SINGULAIR [Concomitant]
  5. HYDROCHLOROTHIAZIDE [Concomitant]

REACTIONS (10)
  - CHROMATOPSIA [None]
  - VISUAL ACUITY REDUCED [None]
  - EYE DISORDER [None]
  - TREMOR [None]
  - BLISTER [None]
  - MUSCLE SPASMS [None]
  - BLINDNESS UNILATERAL [None]
  - INTRAOCULAR PRESSURE INCREASED [None]
  - SLEEP DISORDER [None]
  - MACULAR DEGENERATION [None]
